FAERS Safety Report 6541742-1 (Version None)
Quarter: 2010Q1

REPORT INFORMATION
  Report Type: 
  Country: None (occurrence: None)
  Receive Date: 20100119
  Receipt Date: 20100104
  Transmission Date: 20100710
  Serious: Yes (Other)
  Sender: FDA-Public Use
  Company Number: GB-MYLANLABS-MK-6006607

PATIENT
  Age: 15 Year
  Sex: Female

DRUGS (7)
  1. FLUOXETINE [Suspect]
     Indication: DEPRESSION
  2. FLUOXETINE [Suspect]
     Indication: BULIMIA NERVOSA
  3. FLUOXETINE [Suspect]
  4. FLUOXETINE [Suspect]
  5. MIRTAZAPINE [Suspect]
     Indication: DEPRESSION
  6. QUETIAPINE [Suspect]
     Indication: DEPRESSION
  7. FLUOXETINE [Concomitant]

REACTIONS (2)
  - SUICIDAL IDEATION [None]
  - WEIGHT INCREASED [None]
